FAERS Safety Report 9284243 (Version 1)
Quarter: 2013Q2

REPORT INFORMATION
  Report Type: Report from Study
  Country: DE (occurrence: DE)
  Receive Date: 20130510
  Receipt Date: 20130510
  Transmission Date: 20140414
  Serious: Yes (Death, Life-Threatening, Hospitalization)
  Sender: FDA-Public Use
  Company Number: DE-BAXTER-2013BAX016459

PATIENT
  Age: 67 Year
  Sex: Female
  Weight: 83 kg

DRUGS (11)
  1. ENDOXAN 1G [Suspect]
     Indication: BREAST CANCER
     Route: 065
     Dates: start: 20121106
  2. ENDOXAN 1G [Suspect]
     Route: 065
     Dates: start: 20121204
  3. DEXAMETHASONE [Suspect]
     Indication: BREAST CANCER
     Route: 042
     Dates: start: 20121106
  4. DEXAMETHASONE [Suspect]
     Route: 042
     Dates: start: 20130226
  5. EPIRUBICIN [Suspect]
     Indication: BREAST CANCER
     Route: 042
     Dates: start: 20121106
  6. EPIRUBICIN [Suspect]
     Route: 042
     Dates: start: 20121204
  7. DOCETAXEL [Suspect]
     Indication: BREAST CANCER
     Route: 042
     Dates: start: 20121106
  8. DOCETAXEL [Suspect]
     Route: 042
     Dates: start: 20130110
  9. DOCETAXEL [Suspect]
     Route: 042
     Dates: start: 20130124
  10. DOCETAXEL [Suspect]
     Route: 042
     Dates: start: 20130212
  11. DOCETAXEL [Suspect]
     Route: 042
     Dates: start: 20120226

REACTIONS (7)
  - Acute respiratory distress syndrome [Fatal]
  - Multi-organ failure [Fatal]
  - Nausea [Recovered/Resolved]
  - Vomiting [Recovered/Resolved]
  - Myalgia [Recovered/Resolved]
  - Arthralgia [Recovered/Resolved]
  - Pneumonia [Unknown]
